FAERS Safety Report 13621663 (Version 12)
Quarter: 2019Q4

REPORT INFORMATION
  Report Type: Spontaneous
  Country: US (occurrence: US)
  Receive Date: 20170607
  Receipt Date: 20191202
  Transmission Date: 20200122
  Serious: No
  Sender: FDA-Public Use
  Company Number: US-PFIZER INC-2017244744

PATIENT
  Age: 58 Year
  Sex: Male

DRUGS (18)
  1. PREVACID [Concomitant]
     Active Substance: LANSOPRAZOLE
     Dosage: UNK
     Route: 048
  2. COLACE [Concomitant]
     Active Substance: DOCUSATE SODIUM
     Dosage: 100 MG, 2X/DAY
     Route: 048
  3. THERA VITAMIN [Concomitant]
     Dosage: 1 DF, DAILY (WITH BREAKFAST)
     Route: 048
  4. ASPIRIN. [Concomitant]
     Active Substance: ASPIRIN
     Dosage: 81 MG, 1X/DAY
     Route: 048
  5. NORCO [Concomitant]
     Active Substance: ACETAMINOPHEN\HYDROCODONE BITARTRATE
     Dosage: 1 DF, AS NEEDED, [HYDROCODONE-10MG] [PARACETAMOL-325MG] (THREE TIMES DAILY,UPTO 30 DAYS)
     Route: 048
  6. PRINIVIL [Concomitant]
     Active Substance: LISINOPRIL
     Dosage: 10 MG, 1X/DAY
     Route: 048
  7. LYRICA [Suspect]
     Active Substance: PREGABALIN
     Indication: BACK PAIN
     Dosage: 50 MG, 3X/DAY (TAKE 1 CAPSULE 3 TIMES A DAY BY ORAL ROUTE AS DIRECTED FOR 90 DAYS).
     Route: 048
     Dates: start: 20170124
  8. NORCO [Concomitant]
     Active Substance: ACETAMINOPHEN\HYDROCODONE BITARTRATE
     Indication: PAIN
     Dosage: UNK
     Dates: end: 20170524
  9. XANAX [Concomitant]
     Active Substance: ALPRAZOLAM
     Dosage: 1 MG, 2X/DAY
     Route: 048
  10. LYRICA [Suspect]
     Active Substance: PREGABALIN
     Indication: NEURALGIA
     Dosage: 50 MG, 3X/DAY (TAKE 1 CAPSULE 3 TIMES A DAY BY ORAL ROUTE AS DIRECTED FOR 90 DAYS).
     Route: 048
     Dates: start: 20170124, end: 20170524
  11. SENNA [Concomitant]
     Active Substance: SENNA LEAF\SENNOSIDES\SENNOSIDES A AND B
     Dosage: UNK
     Route: 048
  12. LYRICA [Suspect]
     Active Substance: PREGABALIN
     Indication: SPONDYLOARTHROPATHY
  13. PRINIVIL [Concomitant]
     Active Substance: LISINOPRIL
     Dosage: 15 MG, 1X/DAY
     Route: 048
  14. LYRICA [Suspect]
     Active Substance: PREGABALIN
     Indication: MUSCULOSKELETAL DISORDER
  15. LYRICA [Suspect]
     Active Substance: PREGABALIN
     Indication: COMPLEX REGIONAL PAIN SYNDROME
  16. LYRICA [Suspect]
     Active Substance: PREGABALIN
     Indication: ARTHROPATHY
  17. COREG [Concomitant]
     Active Substance: CARVEDILOL
     Dosage: 12.5 MG, 2X/DAY (WITH MEALS)
     Route: 048
  18. LYRICA [Suspect]
     Active Substance: PREGABALIN
     Indication: RADICULOPATHY

REACTIONS (9)
  - Musculoskeletal stiffness [Unknown]
  - Muscular weakness [Unknown]
  - Hypoaesthesia [Unknown]
  - Back pain [Not Recovered/Not Resolved]
  - Musculoskeletal pain [Not Recovered/Not Resolved]
  - Condition aggravated [Not Recovered/Not Resolved]
  - Paraesthesia [Unknown]
  - Arthralgia [Not Recovered/Not Resolved]
  - Pain in extremity [Unknown]
